FAERS Safety Report 7880337-4 (Version None)
Quarter: 2011Q4

REPORT INFORMATION
  Report Type: 
  Country: None (occurrence: None)
  Receive Date: 20111101
  Receipt Date: 20111021
  Transmission Date: 20120403
  Serious: Yes (Hospitalization)
  Sender: FDA-Public Use
  Company Number: US-BAYER-2011-052532

PATIENT
  Age: 24 Year
  Sex: Female
  Weight: 65.76 kg

DRUGS (6)
  1. SPIRONOLACTONE [Concomitant]
  2. DROSPIRENONE AND ETHINYL ESTRADIOL [Suspect]
     Indication: PRODUCT USED FOR UNKNOWN INDICATION
     Dosage: UNK
     Dates: start: 20080101, end: 20090101
  3. YASMIN [Suspect]
     Dosage: UNK
     Dates: start: 20080101, end: 20090101
  4. METFORMIN HCL [Concomitant]
  5. IBUPROFEN [Concomitant]
  6. PREDNISONE [Concomitant]

REACTIONS (4)
  - GALLBLADDER DISORDER [None]
  - INJURY [None]
  - CHOLECYSTITIS CHRONIC [None]
  - PAIN [None]
